FAERS Safety Report 6808750-4 (Version None)
Quarter: 2010Q2

REPORT INFORMATION
  Report Type: 
  Country: None (occurrence: None)
  Receive Date: 20100629
  Receipt Date: 20090916
  Transmission Date: 20101027
  Serious: Yes (Other)
  Sender: FDA-Public Use
  Company Number: US-PFIZER INC-2009275117

PATIENT

DRUGS (2)
  1. XANAX [Suspect]
     Dosage: 1 MG
  2. MILNACIPRAN HYDROCHLORIDE [Suspect]

REACTIONS (1)
  - CONVULSION [None]
